FAERS Safety Report 7289591-3 (Version None)
Quarter: 2011Q1

REPORT INFORMATION
  Report Type: 
  Country: None (occurrence: None)
  Receive Date: 20110125
  Receipt Date: 20110110
  Transmission Date: 20110831
  Serious: Yes (Hospitalization, Disabling)
  Sender: FDA-Public Use
  Company Number: 2011P1003851

PATIENT
  Age: 69 Year
  Sex: Female
  Weight: 66.6788 kg

DRUGS (19)
  1. ASPIRIN [Concomitant]
  2. WOMAN'S ONE A DAY MULTIVITAMIN [Concomitant]
  3. DIPHENHYDRAMINE HCL [Concomitant]
  4. FISH OIL [Concomitant]
  5. MAGNESIUM 400 MG [Concomitant]
  6. LAMOTRIGINE TABLETS 150MG (NO PREF. NAME) [Suspect]
     Indication: BIPOLAR II DISORDER
     Dosage: 1 TABLET;PO ; 2 TABLET ; 3 TABLET
     Route: 048
     Dates: start: 20101212, end: 20101212
  7. LAMOTRIGINE TABLETS 150MG (NO PREF. NAME) [Suspect]
     Indication: BIPOLAR II DISORDER
     Dosage: 1 TABLET;PO ; 2 TABLET ; 3 TABLET
     Route: 048
     Dates: start: 20101213, end: 20101213
  8. LAMOTRIGINE TABLETS 150MG (NO PREF. NAME) [Suspect]
     Indication: BIPOLAR II DISORDER
     Dosage: 1 TABLET;PO ; 2 TABLET ; 3 TABLET
     Route: 048
     Dates: start: 20101211, end: 20101211
  9. CRESTOR [Concomitant]
  10. POTASSIUM GLUCONATE TAB [Concomitant]
  11. MICARDIS HCT [Concomitant]
  12. MILNACIPRAN [Concomitant]
  13. GARLIC SUPPLEMENT [Concomitant]
  14. GABAPENTIN [Concomitant]
  15. NEXIUM [Concomitant]
  16. LUBIPROSTONE [Concomitant]
  17. PREV MEDS [Concomitant]
  18. GLYBURIDE [Concomitant]
  19. HYDROCODONE BITARTRATE [Concomitant]

REACTIONS (8)
  - GAIT DISTURBANCE [None]
  - BALANCE DISORDER [None]
  - MEMORY IMPAIRMENT [None]
  - MALAISE [None]
  - ABNORMAL BEHAVIOUR [None]
  - HYPERTENSION [None]
  - HALLUCINATION, VISUAL [None]
  - AGITATION [None]
